FAERS Safety Report 16559654 (Version 2)
Quarter: 2019Q3

REPORT INFORMATION
  Report Type: Spontaneous
  Country: US (occurrence: US)
  Receive Date: 20190711
  Receipt Date: 20190801
  Transmission Date: 20191004
  Serious: No
  Sender: FDA-Public Use
  Company Number: US-PFIZER INC-2019285725

PATIENT
  Age: 65 Year
  Sex: Female
  Weight: 45.36 kg

DRUGS (1)
  1. IBUPROFEN. [Suspect]
     Active Substance: IBUPROFEN
     Indication: PAIN
     Dosage: 800 MG, 4X/DAY (EVERY 6 HOURS)
     Dates: start: 20190313

REACTIONS (2)
  - Drug ineffective [Recovered/Resolved]
  - Feeling abnormal [Unknown]
